FAERS Safety Report 23683316 (Version 1)
Quarter: 2024Q1

REPORT INFORMATION
  Report Type: Spontaneous
  Country: US (occurrence: US)
  Receive Date: 20240328
  Receipt Date: 20240328
  Transmission Date: 20240410
  Serious: No
  Sender: FDA-Public Use
  Company Number: US-APOTEX-2024AP004016

PATIENT
  Age: 47 Year
  Sex: Male

DRUGS (5)
  1. GABAPENTIN [Suspect]
     Active Substance: GABAPENTIN
     Indication: Alcohol use disorder
     Dosage: 600 MILLIGRAM, TID
     Route: 065
  2. NALTREXONE [Concomitant]
     Active Substance: NALTREXONE
     Indication: Alcohol use disorder
     Dosage: 380 MILLIGRAM, Q.M.T.
     Route: 030
  3. ACAMPROSATE [Concomitant]
     Active Substance: ACAMPROSATE
     Indication: Alcohol use disorder
     Dosage: 666 MILLIGRAM, TID
     Route: 065
  4. DISULFIRAM [Concomitant]
     Active Substance: DISULFIRAM
     Indication: Alcohol use disorder
     Dosage: 250 MILLIGRAM, QD
     Route: 065
  5. NALTREXONE [Concomitant]
     Active Substance: NALTREXONE
     Indication: Alcohol use disorder
     Dosage: 50 MILLIGRAM, QD
     Route: 048

REACTIONS (2)
  - Off label use [Unknown]
  - Fatigue [Unknown]
